FAERS Safety Report 8505892-2 (Version None)
Quarter: 2012Q3

REPORT INFORMATION
  Report Type: 
  Country: None (occurrence: None)
  Receive Date: 20120703
  Receipt Date: 20120626
  Transmission Date: 20120928
  Serious: Yes (Hospitalization)
  Sender: FDA-Public Use
  Company Number: 2012SP036422

PATIENT
  Age: 53 Year
  Sex: Male

DRUGS (6)
  1. BELUSTINE (LOMUSTINE) [Suspect]
     Indication: OLIGODENDROGLIOMA
     Dosage: PO
     Route: 048
     Dates: start: 20101018, end: 20111220
  2. VINCRISTINE SULFATE [Suspect]
     Indication: OLIGODENDROGLIOMA
     Dosage: IV
     Route: 042
     Dates: start: 20101026, end: 20110720
  3. TEMODAL [Suspect]
     Indication: OLIGODENDROGLIOMA
     Dosage: PO
     Route: 048
     Dates: start: 20080101, end: 20090801
  4. TEMODAL [Suspect]
     Indication: OLIGODENDROGLIOMA
     Dosage: PO
     Route: 048
     Dates: start: 20100101, end: 20100901
  5. TEMODAL [Suspect]
     Indication: OLIGODENDROGLIOMA
     Dosage: PO
     Route: 048
     Dates: start: 20070501, end: 20070701
  6. MATULANE [Suspect]
     Indication: OLIGODENDROGLIOMA
     Dosage: PO
     Route: 048
     Dates: start: 20101026, end: 20110720

REACTIONS (3)
  - REFRACTORY ANAEMIA [None]
  - MYELODYSPLASTIC SYNDROME [None]
  - ANAEMIA [None]
